FAERS Safety Report 11055845 (Version 1)
Quarter: 2015Q2

REPORT INFORMATION
  Report Type: Report from Study
  Country: CA (occurrence: CA)
  Receive Date: 20150422
  Receipt Date: 20150422
  Transmission Date: 20150821
  Serious: Yes (Hospitalization, Other)
  Sender: FDA-Public Use
  Company Number: CA-JNJFOC-20150409629

PATIENT
  Age: 49 Year
  Sex: Female
  Weight: 42.5 kg

DRUGS (1)
  1. REMICADE [Suspect]
     Active Substance: INFLIXIMAB
     Indication: CROHN^S DISEASE
     Route: 042
     Dates: start: 20100708

REACTIONS (5)
  - Benign neoplasm [Recovered/Resolved]
  - Salpingectomy [Recovered/Resolved]
  - Colectomy total [Recovered/Resolved]
  - Clostridium difficile infection [Recovered/Resolved]
  - Oophorectomy [Recovered/Resolved]

NARRATIVE: CASE EVENT DATE: 20150210
